FAERS Safety Report 19711273 (Version 1)
Quarter: 2021Q3

REPORT INFORMATION
  Report Type: Other
  Country: MD (occurrence: MD)
  Receive Date: 20210816
  Receipt Date: 20210816
  Transmission Date: 20211014
  Serious: Yes (Hospitalization)
  Sender: FDA-Public Use
  Company Number: MD-ROCHE-2888209

PATIENT
  Age: 63 Year
  Sex: Female

DRUGS (1)
  1. ACTILYSE [Suspect]
     Active Substance: ALTEPLASE
     Indication: ACUTE PULMONARY OEDEMA
     Dosage: 100 MG IV ACCORDING TO THE SCHEDULE (10 MG BOLUS AND 90 MG FOR 90 MIN), AS NECESSARY
     Route: 042
     Dates: start: 20210112

REACTIONS (1)
  - Acute kidney injury [Unknown]
